FAERS Safety Report 12622816 (Version 2)
Quarter: 2016Q3

REPORT INFORMATION
  Report Type: Spontaneous
  Country: None (occurrence: DE)
  Receive Date: 20160804
  Receipt Date: 20160915
  Transmission Date: 20161109
  Serious: Yes (Hospitalization)
  Sender: FDA-Public Use
  Company Number: DE-MEDAC PHARMA, INC.-1055868

PATIENT
  Age: 75 Year
  Sex: Female
  Weight: 55 kg

DRUGS (1)
  1. METHOTREXATE. [Suspect]
     Active Substance: METHOTREXATE
     Indication: PSORIASIS
     Route: 058
     Dates: start: 20160719, end: 20160722

REACTIONS (6)
  - Accidental overdose [Unknown]
  - Cutaneous symptom [Recovered/Resolved]
  - Leukopenia [Recovered/Resolved]
  - Inappropriate schedule of drug administration [Unknown]
  - C-reactive protein increased [Unknown]
  - Thrombocytopenia [Recovered/Resolved]

NARRATIVE: CASE EVENT DATE: 20160729
